FAERS Safety Report 6988514-1 (Version None)
Quarter: 2010Q3

REPORT INFORMATION
  Report Type: 
  Country: None (occurrence: None)
  Receive Date: 20100916
  Receipt Date: 20100907
  Transmission Date: 20110219
  Serious: Yes (Hospitalization)
  Sender: FDA-Public Use
  Company Number: US-PFIZER INC-2010086741

PATIENT
  Age: 65 Year
  Sex: Male
  Weight: 84.09 kg

DRUGS (10)
  1. CAMPTOSAR [Suspect]
     Indication: INTESTINAL ADENOCARCINOMA
     Dosage: 150 MG/M2, EVERY CYCLE
     Route: 041
     Dates: start: 20090903, end: 20090903
  2. CAMPTOSAR [Suspect]
     Dosage: 240 MG, EVERY CYCLE
     Route: 041
     Dates: start: 20091229, end: 20091229
  3. XELODA [Suspect]
     Indication: INTESTINAL ADENOCARCINOMA
     Dosage: 800 MG/M2, 2X/DAY
     Route: 048
     Dates: start: 20090904
  4. XELODA [Suspect]
     Dosage: 800 MG/M2, 2X/DAY
     Route: 048
     Dates: start: 20091229, end: 20100102
  5. ELOXATIN [Suspect]
     Indication: INTESTINAL ADENOCARCINOMA
     Dosage: 100 MG/M2, EVERY CYCLE
     Route: 041
     Dates: start: 20090903, end: 20090903
  6. ELOXATIN [Suspect]
     Dosage: 160 MG, EVERY CYCLE
     Route: 041
     Dates: start: 20091229, end: 20091229
  7. TPN ELECTROLYTES IN PLASTIC CONTAINER [Concomitant]
  8. NIACINAMIDE [Concomitant]
  9. PYRIDOXINE HYDROCHLORIDE [Concomitant]
  10. TYROSINE [Concomitant]

REACTIONS (7)
  - AGITATION [None]
  - CHILLS [None]
  - HAEMOGLOBIN [None]
  - NEUTROPHIL COUNT ABNORMAL [None]
  - PYREXIA [None]
  - SEPSIS [None]
  - URINARY TRACT INFECTION [None]
